FAERS Safety Report 17204433 (Version 1)
Quarter: 2019Q4

REPORT INFORMATION
  Report Type: Spontaneous
  Country: GB (occurrence: GB)
  Receive Date: 20191226
  Receipt Date: 20191226
  Transmission Date: 20200122
  Serious: Yes (Hospitalization)
  Sender: FDA-Public Use
  Company Number: GB-PFIZER INC-2019549728

PATIENT
  Age: 33 Year
  Sex: Female
  Weight: 70 kg

DRUGS (1)
  1. DEPO-MEDRONE [Suspect]
     Active Substance: METHYLPREDNISOLONE
     Indication: PAIN MANAGEMENT
     Dosage: 1 ML, UNK
     Route: 014
     Dates: start: 20190913, end: 20190913

REACTIONS (4)
  - Pallor [Recovered/Resolved]
  - Syncope [Recovered/Resolved]
  - Nausea [Recovered/Resolved]
  - Seizure [Recovered/Resolved]

NARRATIVE: CASE EVENT DATE: 20190913
